FAERS Safety Report 15148977 (Version 1)
Quarter: 2018Q3

REPORT INFORMATION
  Report Type: Spontaneous
  Country: GB (occurrence: GB)
  Receive Date: 20180716
  Receipt Date: 20180716
  Transmission Date: 20181010
  Serious: Yes (Other)
  Sender: FDA-Public Use
  Company Number: GB-PFIZER INC-2018277384

PATIENT
  Sex: Female
  Weight: 63.5 kg

DRUGS (3)
  1. LORAZEPAM. [Concomitant]
     Active Substance: LORAZEPAM
     Indication: ANXIETY
     Dosage: 1 MG, UNK, (STARTED TAKING IT 4 YEARS AGO)
  2. SERTRALINE HCL [Suspect]
     Active Substance: SERTRALINE HYDROCHLORIDE
     Indication: DEPRESSION
     Dosage: 100 MG, UNK
     Route: 048
  3. SERTRALINE HCL [Suspect]
     Active Substance: SERTRALINE HYDROCHLORIDE
     Indication: ANXIETY
     Dosage: 50 MG, UNK
     Route: 048
     Dates: start: 20180410

REACTIONS (12)
  - Vision blurred [Unknown]
  - Feeling abnormal [Unknown]
  - Trichorrhexis [Not Recovered/Not Resolved]
  - Tremor [Unknown]
  - Headache [Unknown]
  - Hair texture abnormal [Not Recovered/Not Resolved]
  - Vomiting [Unknown]
  - Hyperhidrosis [Unknown]
  - Cognitive disorder [Unknown]
  - Weight decreased [Recovered/Resolved]
  - Mental impairment [Unknown]
  - Dizziness [Recovered/Resolved]
